FAERS Safety Report 9357487 (Version 2)
Quarter: 2013Q3

REPORT INFORMATION
  Report Type: Report from Study
  Country: US (occurrence: US)
  Receive Date: 20130620
  Receipt Date: 20130820
  Transmission Date: 20140515
  Serious: Yes (Hospitalization, Other)
  Sender: FDA-Public Use
  Company Number: PHEH2013US013173

PATIENT
  Age: 66 Year
  Sex: Male

DRUGS (4)
  1. GLEEVEC [Suspect]
     Indication: ACUTE LYMPHOCYTIC LEUKAEMIA
     Dosage: 450 MG, DAILY
     Route: 048
     Dates: start: 2009
  2. GLEEVEC [Suspect]
     Dosage: 350 MG, DAILY (200MG EVERY MORNING AND 150MG EVERY EVENING)
     Route: 048
  3. ACYCLOVIR [Concomitant]
     Dosage: UNK UKN, TID
     Route: 042
  4. VANCOMYCIN [Concomitant]
     Dosage: UNK UKN, BID
     Route: 042

REACTIONS (7)
  - Meningitis [Unknown]
  - Blister [Unknown]
  - Pyrexia [Unknown]
  - Rash [Unknown]
  - Herpes zoster [Unknown]
  - Device related infection [Unknown]
  - Blood electrolytes decreased [Unknown]
